FAERS Safety Report 9530969 (Version 2)
Quarter: 2014Q1

REPORT INFORMATION
  Report Type: Spontaneous
  Country: US (occurrence: None)
  Receive Date: 20130402
  Receipt Date: 20140304
  Transmission Date: 20141002
  Serious: Yes (Hospitalization, Other)
  Sender: FDA-Public Use
  Company Number: RB-46539-2012

PATIENT
  Age: 29 Year
  Sex: Female

DRUGS (6)
  1. SUBOXONE 8 MG [Suspect]
     Indication: DRUG DEPENDENCE
     Route: 060
     Dates: start: 201206, end: 201210
  2. SUBUTEX [Suspect]
     Indication: DRUG DEPENDENCE
     Route: 060
     Dates: start: 201210, end: 20130108
  3. PERCOCET [Suspect]
     Indication: DRUG DEPENDENCE
     Route: 048
     Dates: start: 20130109, end: 201301
  4. XANAX (NOT SPECIFIED) [Suspect]
     Indication: ANXIETY
     Route: 048
     Dates: end: 20130111
  5. KLONOPIN [Concomitant]
     Indication: ANXIETY
     Dates: start: 20130116
  6. METHADONE [Concomitant]
     Indication: DRUG DEPENDENCE
     Dates: start: 201301

REACTIONS (7)
  - Substance abuse [None]
  - Wrong technique in drug usage process [None]
  - Underdose [None]
  - Maternal exposure during pregnancy [None]
  - Pelvic pain [None]
  - Drug withdrawal syndrome [None]
  - Tremor [None]
